FAERS Safety Report 14324179 (Version 1)
Quarter: 2017Q4

REPORT INFORMATION
  Report Type: Not Available
  Country: US (occurrence: US)
  Receive Date: 20171226
  Receipt Date: 20171226
  Transmission Date: 20180321
  Serious: No
  Sender: FDA-Public Use
  Company Number: US-NEUROCRINE BIOSCIENCES INC.-2017NBI01382

PATIENT
  Age: 74 Year
  Sex: Male

DRUGS (21)
  1. CHLORASEPTIC SORE THROAT [Concomitant]
     Active Substance: PHENOL
  2. PRILOSEC [Concomitant]
     Active Substance: OMEPRAZOLE MAGNESIUM
  3. INGREZZA [Suspect]
     Active Substance: VALBENAZINE
     Indication: TARDIVE DYSKINESIA
     Route: 048
     Dates: start: 20170907, end: 20171020
  4. OSCAL [Concomitant]
     Active Substance: CALCIUM CARBONATE
  5. MULTIVITAMIN [Concomitant]
     Active Substance: VITAMINS
  6. SYSTANE (HYPROMELLOSE 2910 (4000 MPA.S)) [Concomitant]
     Active Substance: HYPROMELLOSE 2910 (4000 MPA.S)
  7. FERROUS SULFATE. [Concomitant]
     Active Substance: FERROUS SULFATE
  8. METAMUSIL [Concomitant]
  9. THICKIT [Concomitant]
  10. DUBROX [Concomitant]
  11. FLOMAX [Concomitant]
     Active Substance: TAMSULOSIN HYDROCHLORIDE
  12. INVEGA [Concomitant]
     Active Substance: PALIPERIDONE
  13. MOBIC [Concomitant]
     Active Substance: MELOXICAM
  14. TYLENOL [Concomitant]
     Active Substance: ACETAMINOPHEN
  15. ENSURE [Concomitant]
     Active Substance: AMINO ACIDS\DEXTROSE\ELECTROLYTES NOS\SOYBEAN OIL\VITAMINS
  16. FLONASE [Concomitant]
     Active Substance: FLUTICASONE PROPIONATE
  17. MELATONIN [Concomitant]
     Active Substance: MELATONIN
  18. ZYRTEC [Concomitant]
     Active Substance: CETIRIZINE HYDROCHLORIDE
  19. SENNAGEN [Concomitant]
     Active Substance: SENNOSIDES
  20. TRICOR [Concomitant]
     Active Substance: FENOFIBRATE
  21. LEXAPRO [Concomitant]
     Active Substance: ESCITALOPRAM OXALATE

REACTIONS (2)
  - Somnolence [Recovered/Resolved]
  - Drug ineffective [None]

NARRATIVE: CASE EVENT DATE: 2017
